FAERS Safety Report 6541464-7 (Version None)
Quarter: 2010Q1

REPORT INFORMATION
  Report Type: 
  Country: None (occurrence: None)
  Receive Date: 20100118
  Receipt Date: 20100109
  Transmission Date: 20100710
  Serious: Yes (Hospitalization)
  Sender: FDA-Public Use
  Company Number: US-ABBOTT-10P-163-0618366-00

PATIENT
  Sex: Male
  Weight: 95.34 kg

DRUGS (1)
  1. HUMIRA [Suspect]
     Indication: CROHN'S DISEASE
     Dates: start: 20091113

REACTIONS (5)
  - ALOPECIA [None]
  - FATIGUE [None]
  - MYALGIA [None]
  - NAUSEA [None]
  - RECTAL HAEMORRHAGE [None]
